FAERS Safety Report 12078132 (Version 7)
Quarter: 2016Q3

REPORT INFORMATION
  Report Type: Report from Study
  Country: NO (occurrence: NO)
  Receive Date: 20160215
  Receipt Date: 20160714
  Transmission Date: 20161109
  Serious: Yes (Hospitalization, Other)
  Sender: FDA-Public Use
  Company Number: NO-ABBVIE-16P-122-1558057-00

PATIENT
  Age: 54 Year
  Sex: Male

DRUGS (1)
  1. DUODOPA [Suspect]
     Active Substance: CARBIDOPA\LEVODOPA
     Indication: PARKINSON^S DISEASE
     Dosage: 24 HOUR TREATMENT/SEE NARRATIVE
     Route: 050
     Dates: start: 20160122

REACTIONS (17)
  - Lower limb fracture [Unknown]
  - Upper limb fracture [Unknown]
  - Stoma site irritation [Unknown]
  - General physical health deterioration [Unknown]
  - Aggression [Recovered/Resolved]
  - Nightmare [Unknown]
  - Fall [Recovered/Resolved]
  - Stoma site erythema [Unknown]
  - Stoma site infection [Unknown]
  - Hallucination [Recovered/Resolved]
  - Abnormal behaviour [Recovered/Resolved]
  - Psychotic disorder [Recovered/Resolved]
  - Joint contracture [Unknown]
  - Dystonia [Unknown]
  - Aggression [Recovered/Resolved]
  - Mental impairment [Unknown]
  - Stoma site hypergranulation [Unknown]

NARRATIVE: CASE EVENT DATE: 2016
